FAERS Safety Report 22532305 (Version 1)
Quarter: 2023Q2

REPORT INFORMATION
  Report Type: Spontaneous
  Country: IT (occurrence: IT)
  Receive Date: 20230607
  Receipt Date: 20230607
  Transmission Date: 20230722
  Serious: Yes (Other)
  Sender: FDA-Public Use
  Company Number: None

PATIENT
  Age: 68 Year
  Sex: Female
  Weight: 45 kg

DRUGS (8)
  1. NORVASC [Interacting]
     Active Substance: AMLODIPINE BESYLATE
     Indication: Hypertension
     Dosage: 5 MILLIGRAM, QD
     Route: 048
  2. BOSENTAN [Interacting]
     Active Substance: BOSENTAN
     Indication: Product used for unknown indication
     Dosage: 62.5 MILLIGRAM, BID
     Route: 048
     Dates: start: 202011
  3. BOSENTAN [Interacting]
     Active Substance: BOSENTAN
     Dosage: 125 MILLIGRAM, BID
     Route: 048
     Dates: start: 202102, end: 202305
  4. ASPIRIN [Interacting]
     Active Substance: ASPIRIN
     Indication: Disease risk factor
     Dosage: 100 MILLIGRAM, QD
     Route: 048
  5. OFEV [Suspect]
     Active Substance: NINTEDANIB
     Indication: Systemic scleroderma
     Dosage: 150 MILLIGRAM, QOD DRUG HAS BEEN DISCONTINUED. WI
     Route: 048
     Dates: start: 202302, end: 202305
  6. METHYLPREDNISOLONE [Interacting]
     Active Substance: METHYLPREDNISOLONE
     Indication: Rheumatic disorder
     Dosage: 4 MILLIGRAM, QOD
     Route: 048
  7. ESOMEPRAZOLE [Interacting]
     Active Substance: ESOMEPRAZOLE
     Indication: Product used for unknown indication
     Dosage: UNK
     Route: 048
  8. MYCOPHENOLATE MOFETIL [Interacting]
     Active Substance: MYCOPHENOLATE MOFETIL
     Indication: Systemic scleroderma
     Dosage: 2000 MILLIGRAM, QD 2 TABLETS OF 500 MG TWICE DAIL
     Route: 048
     Dates: start: 202102, end: 202305

REACTIONS (2)
  - Dysentery [Recovering/Resolving]
  - Drug interaction [Unknown]

NARRATIVE: CASE EVENT DATE: 20230201
